FAERS Safety Report 10343456 (Version 1)
Quarter: 2014Q3

REPORT INFORMATION
  Report Type: Spontaneous
  Country: TR (occurrence: None)
  Receive Date: 20140723
  Receipt Date: 20140723
  Transmission Date: 20150326
  Serious: Yes (Life-Threatening, Hospitalization)
  Sender: FDA-Public Use
  Company Number: IPC201407-000367

PATIENT
  Age: 49 Year
  Sex: Male

DRUGS (3)
  1. VERAPAMIL (VERAPAMIL) (VERAPAMIL) [Concomitant]
     Active Substance: VERAPAMIL HYDROCHLORIDE
  2. ALBUTEROL (ALBUTEROL) (ALBUTEROL) [Concomitant]
     Active Substance: ALBUTEROL
  3. WARFARIN (WARFARIN) (WARFARIN) [Suspect]
     Active Substance: WARFARIN
     Dosage: TABLET

REACTIONS (6)
  - Dyspnoea [None]
  - Respiratory failure [None]
  - Pulmonary alveolar haemorrhage [None]
  - Haemoptysis [None]
  - Tachypnoea [None]
  - Crepitations [None]
